FAERS Safety Report 6883378-9 (Version None)
Quarter: 2010Q3

REPORT INFORMATION
  Report Type: 
  Country: None (occurrence: None)
  Receive Date: 20100727
  Receipt Date: 20071219
  Transmission Date: 20110219
  Serious: Yes (Hospitalization, Disabling, Other)
  Sender: FDA-Public Use
  Company Number: US-PFIZER INC-2006081735

PATIENT
  Sex: Male
  Weight: 88.9 kg

DRUGS (6)
  1. CELEBREX [Suspect]
     Indication: RHEUMATOID ARTHRITIS
     Dosage: 2-3 TIMES A DAY
     Route: 048
     Dates: start: 19990326
  2. VERAPAMIL [Concomitant]
  3. PRILOSEC [Concomitant]
  4. TESTOSTERONE [Concomitant]
     Route: 030
  5. ETANERCEPT [Concomitant]
     Route: 058
  6. LIPITOR [Concomitant]

REACTIONS (1)
  - MYOCARDIAL INFARCTION [None]
